FAERS Safety Report 12377361 (Version 1)
Quarter: 2016Q2

REPORT INFORMATION
  Report Type: Report from Study
  Country: US (occurrence: US)
  Receive Date: 20160517
  Receipt Date: 20160517
  Transmission Date: 20160815
  Serious: No
  Sender: FDA-Public Use
  Company Number: US-MALLINCKRODT-T201505502

PATIENT
  Sex: Female

DRUGS (5)
  1. REPOSITORY CORTICOTROPIN INJECTION [Suspect]
     Active Substance: CORTICOTROPIN
     Dosage: 80 UNITS TWICE WEEKLY
     Route: 030
     Dates: start: 20151106, end: 201602
  2. VITAMIN C [Concomitant]
     Active Substance: ASCORBIC ACID
  3. METHOTREXATE [Concomitant]
     Active Substance: METHOTREXATE
  4. REPOSITORY CORTICOTROPIN INJECTION [Suspect]
     Active Substance: CORTICOTROPIN
     Indication: PSORIATIC ARTHROPATHY
     Dosage: 80 UNITS, TWICE WEEKLY
     Route: 030
     Dates: start: 20151106
  5. REMICADE [Concomitant]
     Active Substance: INFLIXIMAB

REACTIONS (5)
  - Wheezing [Unknown]
  - Sinusitis [Not Recovered/Not Resolved]
  - Hypersensitivity [Not Recovered/Not Resolved]
  - Malaise [Not Recovered/Not Resolved]
  - Lung infection [Recovering/Resolving]

NARRATIVE: CASE EVENT DATE: 2015
